FAERS Safety Report 25416719 (Version 1)
Quarter: 2025Q2

REPORT INFORMATION
  Report Type: Spontaneous
  Country: US (occurrence: US)
  Receive Date: 20250610
  Receipt Date: 20250610
  Transmission Date: 20250716
  Serious: No
  Sender: ROCHE
  Company Number: US-ROCHE-10000307043

PATIENT
  Age: 54 Year
  Sex: Female

DRUGS (3)
  1. BEVACIZUMAB [Suspect]
     Active Substance: BEVACIZUMAB
     Indication: Ovarian cancer metastatic
     Route: 065
  2. GEMCITABINE [Suspect]
     Active Substance: GEMCITABINE
     Indication: Ovarian cancer metastatic
     Route: 065
  3. ECULIZUMAB [Concomitant]
     Active Substance: ECULIZUMAB

REACTIONS (2)
  - Thrombotic microangiopathy [Unknown]
  - Proteinuria [Unknown]
